FAERS Safety Report 23136614 (Version 1)
Quarter: 2023Q4

REPORT INFORMATION
  Report Type: Spontaneous
  Country: US (occurrence: US)
  Receive Date: 20231102
  Receipt Date: 20231102
  Transmission Date: 20240109
  Serious: No
  Sender: FDA-Public Use
  Company Number: US-OYSTER POINT PHARMA, INC-US-OYS-23-001317

PATIENT
  Age: 62 Year
  Sex: Male

DRUGS (2)
  1. TYRVAYA [Suspect]
     Active Substance: VARENICLINE TARTRATE
     Indication: Dry eye
     Dosage: UNK UNK, UNK
     Route: 045
     Dates: start: 20231007, end: 20231008
  2. HYPROMELLOSE 2910 (4000 MPA.S) [Concomitant]
     Active Substance: HYPROMELLOSE 2910 (4000 MPA.S)
     Indication: Retinal disorder
     Dosage: UNKNOWN
     Route: 065

REACTIONS (5)
  - Eye discharge [Unknown]
  - Uvulitis [Unknown]
  - Scleritis [Unknown]
  - Pain [Recovering/Resolving]
  - Nasal discomfort [Unknown]

NARRATIVE: CASE EVENT DATE: 20231001
